FAERS Safety Report 17881273 (Version 5)
Quarter: 2022Q2

REPORT INFORMATION
  Report Type: Spontaneous
  Country: US (occurrence: US)
  Receive Date: 20200610
  Receipt Date: 20220429
  Transmission Date: 20220721
  Serious: Yes (Other)
  Sender: FDA-Public Use
  Company Number: US-PFIZER INC-2020034654

PATIENT
  Age: 65 Year
  Sex: Female
  Weight: 90.72 kg

DRUGS (5)
  1. PRISTIQ EXTENDED-RELEASE [Suspect]
     Active Substance: DESVENLAFAXINE SUCCINATE
     Indication: Depression
     Dosage: 150 MG, DAILY
  2. PRISTIQ EXTENDED-RELEASE [Suspect]
     Active Substance: DESVENLAFAXINE SUCCINATE
     Indication: Anxiety
     Dosage: 150 MG, DAILY (ONE 100 MG TABLET BY MOUTH FOR 90 DAYS AND ONE 50 MG TABLET BY MOUTH DAILY FOR 90 DAY
     Route: 048
  3. PRISTIQ EXTENDED-RELEASE [Suspect]
     Active Substance: DESVENLAFAXINE SUCCINATE
     Dosage: TAKE BOTH PILLS IN THE MORNING; ONE 50MG AND ONE 100MG
     Dates: start: 2019
  4. PRISTIQ EXTENDED-RELEASE [Suspect]
     Active Substance: DESVENLAFAXINE SUCCINATE
     Dosage: 100 MG, 1X/DAY
     Dates: start: 202201
  5. DULOXETINE [Concomitant]
     Active Substance: DULOXETINE
     Dosage: UNK
     Dates: start: 2008, end: 2020

REACTIONS (8)
  - Drug dependence [Unknown]
  - Drug ineffective [Unknown]
  - Product prescribing error [Unknown]
  - Feeling abnormal [Unknown]
  - Fatigue [Unknown]
  - Anxiety [Unknown]
  - Anger [Unknown]
  - Crying [Unknown]
